FAERS Safety Report 12711791 (Version 3)
Quarter: 2016Q4

REPORT INFORMATION
  Report Type: Report from Study
  Country: US (occurrence: US)
  Receive Date: 20160902
  Receipt Date: 20161221
  Transmission Date: 20170207
  Serious: Yes (Hospitalization)
  Sender: FDA-Public Use
  Company Number: US-B.I. PHARMACEUTICALS,INC./RIDGEFIELD-2016-BI-30822BP

PATIENT
  Sex: Male

DRUGS (1)
  1. OFEV [Suspect]
     Active Substance: NINTEDANIB
     Indication: IDIOPATHIC PULMONARY FIBROSIS
     Route: 048
     Dates: start: 20160425

REACTIONS (7)
  - Nausea [Unknown]
  - Decreased appetite [Unknown]
  - Hypoaesthesia [Unknown]
  - Product quality issue [Unknown]
  - Productive cough [Unknown]
  - Dyspnoea [Unknown]
  - Implant site infection [Unknown]
